FAERS Safety Report 6132629-7 (Version None)
Quarter: 2009Q1

REPORT INFORMATION
  Report Type: 
  Country: None (occurrence: None)
  Receive Date: 20090324
  Receipt Date: 20090310
  Transmission Date: 20090719
  Serious: Yes (Hospitalization)
  Sender: FDA-Public Use
  Company Number: KV200900295

PATIENT
  Age: 63 Year
  Sex: Male

DRUGS (14)
  1. ISOSORBIDE MONONITRATE [Suspect]
     Indication: DRUG USE FOR UNKNOWN INDICATION
     Dosage: 60 MG, QD, ORAL
     Route: 048
  2. AMIODARONE (AMIODARONE) [Concomitant]
  3. ZETIA [Concomitant]
  4. COREG [Concomitant]
  5. VASOTEC /00574902/ (ENALAPRIL MALEATE) [Concomitant]
  6. METHOTREXATE [Concomitant]
  7. LASIX [Concomitant]
  8. PERSANTINE [Concomitant]
  9. COUMADIN [Concomitant]
  10. DESYREL [Concomitant]
  11. ASPIRIN [Concomitant]
  12. PLAQUENIL /00072602/ (HYDROXYCHLOROQUINE PHOSPHATE) [Concomitant]
  13. FORTEO [Concomitant]
  14. ERGOCALCIFEROL [Concomitant]

REACTIONS (6)
  - FALL [None]
  - HEAD INJURY [None]
  - HIP FRACTURE [None]
  - HYPOTENSION [None]
  - INJURY [None]
  - PRODUCT QUALITY ISSUE [None]
